FAERS Safety Report 6013322-8 (Version None)
Quarter: 2008Q4

REPORT INFORMATION
  Report Type: 
  Country: None (occurrence: None)
  Receive Date: 20081219
  Receipt Date: 20081211
  Transmission Date: 20090506
  Serious: Yes (Hospitalization, Other)
  Sender: FDA-Public Use
  Company Number: BR-ABBOTT-06P-020-0345734-00

PATIENT
  Sex: Female

DRUGS (7)
  1. HUMIRA [Suspect]
     Indication: RHEUMATOID ARTHRITIS
     Route: 058
     Dates: start: 20050101, end: 20060907
  2. HUMIRA [Suspect]
     Route: 058
     Dates: start: 20061019, end: 20071201
  3. HUMIRA [Suspect]
     Route: 050
     Dates: start: 20070404
  4. METHOTREXATE [Concomitant]
     Indication: DRUG USE FOR UNKNOWN INDICATION
  5. CHLOROQUINE PHOSPHATE [Concomitant]
     Indication: DRUG USE FOR UNKNOWN INDICATION
  6. LEFLUNOMIDE [Concomitant]
     Indication: DRUG USE FOR UNKNOWN INDICATION
  7. INFLIXIMAB [Concomitant]
     Indication: DRUG USE FOR UNKNOWN INDICATION

REACTIONS (6)
  - ANAEMIA [None]
  - DEVICE FAILURE [None]
  - DEVICE RELATED INFECTION [None]
  - GAIT DISTURBANCE [None]
  - NOSOCOMIAL INFECTION [None]
  - PAIN IN EXTREMITY [None]
